FAERS Safety Report 11650253 (Version 2)
Quarter: 2015Q4

REPORT INFORMATION
  Report Type: Spontaneous
  Country: FR (occurrence: FR)
  Receive Date: 20151021
  Receipt Date: 20151022
  Transmission Date: 20160304
  Serious: Yes (Hospitalization)
  Sender: FDA-Public Use
  Company Number: PHHY2015FR135063

PATIENT
  Age: 63 Year
  Sex: Male

DRUGS (7)
  1. VELBE [Suspect]
     Active Substance: VINBLASTINE SULFATE
     Indication: HODGKIN^S DISEASE
     Dosage: 12 MG, QD
     Route: 042
     Dates: start: 20150811, end: 20150811
  2. METHYLPREDNISOLONE. [Suspect]
     Active Substance: METHYLPREDNISOLONE
     Indication: PREMEDICATION
     Dosage: 1 DF, QD
     Route: 042
     Dates: start: 20150811, end: 20150811
  3. DACARBAZIN MEDAC [Suspect]
     Active Substance: DACARBAZINE
     Indication: HODGKIN^S DISEASE
     Dosage: 740 MG, UNK
     Route: 042
     Dates: start: 20150811, end: 20150811
  4. POLARAMINE [Suspect]
     Active Substance: DEXCHLORPHENIRAMINE MALEATE
     Indication: PREMEDICATION
     Dosage: 1 DF, QD
     Route: 042
     Dates: start: 20150811, end: 20150811
  5. DOXORUBICIN TEVA [Suspect]
     Active Substance: DOXORUBICIN
     Indication: HODGKIN^S DISEASE
     Dosage: 50 MG, QD
     Route: 042
     Dates: start: 20150811, end: 20150811
  6. BLEOMYCINE BELLON [Suspect]
     Active Substance: BLEOMYCIN SULFATE
     Indication: HODGKIN^S DISEASE
     Dosage: 15 MG, POWDER FOR INJECTABLE SOLUTION
     Route: 042
     Dates: start: 20150811, end: 20150811
  7. ZOPHREN [Suspect]
     Active Substance: ONDANSETRON
     Indication: PREMEDICATION
     Dosage: 8 ML, QD
     Route: 042
     Dates: start: 20150811, end: 20150811

REACTIONS (9)
  - Cholestasis [Not Recovered/Not Resolved]
  - Pleural effusion [Unknown]
  - Pericardial effusion [Unknown]
  - Gamma-glutamyltransferase increased [None]
  - Aspartate aminotransferase increased [None]
  - Blood alkaline phosphatase increased [None]
  - Epstein-Barr virus test positive [None]
  - Transaminases increased [Recovered/Resolved]
  - Alanine aminotransferase increased [None]

NARRATIVE: CASE EVENT DATE: 20150811
